FAERS Safety Report 7161376-8 (Version None)
Quarter: 2010Q4

REPORT INFORMATION
  Report Type: 
  Country: None (occurrence: None)
  Receive Date: 20101123
  Receipt Date: 20100723
  Transmission Date: 20110411
  Serious: Yes (Other)
  Sender: FDA-Public Use
  Company Number: 016136

PATIENT
  Sex: Female

DRUGS (1)
  1. CIMZIA [Suspect]
     Dosage: ( UNKNOWN DOSE SUBCUTANEOUS)
     Route: 058
     Dates: start: 20100215

REACTIONS (2)
  - ABDOMINAL PAIN [None]
  - SINUSITIS [None]
